FAERS Safety Report 25426392 (Version 2)
Quarter: 2025Q3

REPORT INFORMATION
  Report Type: Spontaneous
  Country: US (occurrence: US)
  Receive Date: 20250612
  Receipt Date: 20250815
  Transmission Date: 20251021
  Serious: No
  Sender: STALLERGENES
  Company Number: US-STALCOR-2025-AER-01938

PATIENT
  Age: 7 Year
  Sex: Female

DRUGS (2)
  1. PALFORZIA [Suspect]
     Active Substance: PEANUT
     Indication: Food allergy
     Dosage: REACTIVE DOSE, AT 80MG
     Route: 048
  2. PALFORZIA [Suspect]
     Active Substance: PEANUT
     Dosage: IDE
     Route: 048
     Dates: start: 202409

REACTIONS (1)
  - Oral pruritus [Recovered/Resolved]
